FAERS Safety Report 5844958-2 (Version None)
Quarter: 2008Q3

REPORT INFORMATION
  Report Type: 
  Country: None (occurrence: None)
  Receive Date: 20080813
  Receipt Date: 20080813
  Transmission Date: 20090109
  Serious: Yes (Other)
  Sender: FDA-Public Use
  Company Number: None

PATIENT
  Sex: Female

DRUGS (7)
  1. REVLIMID [Suspect]
     Indication: MULTIPLE MYELOMA
     Dosage: 15MG DAILY 21D/28D ORAL
     Route: 048
  2. DEXAMETHASONE [Concomitant]
  3. COZAAR [Concomitant]
  4. METOPROLOL [Concomitant]
  5. WARFARIN SODIUM [Concomitant]
  6. PROZAC [Concomitant]
  7. ENDOCET [Concomitant]

REACTIONS (1)
  - LEUKOPENIA [None]
